FAERS Safety Report 16470382 (Version 1)
Quarter: 2019Q2

REPORT INFORMATION
  Report Type: Spontaneous
  Country: US (occurrence: US)
  Receive Date: 20190624
  Receipt Date: 20190624
  Transmission Date: 20190711
  Serious: No
  Sender: FDA-Public Use
  Company Number: US-TEVA-2019-US-1060424

PATIENT
  Sex: Female

DRUGS (2)
  1. ACCORD ESCITALOPRAM [Suspect]
     Active Substance: ESCITALOPRAM OXALATE
  2. TEVA ESCITALOPRAM [Suspect]
     Active Substance: ESCITALOPRAM OXALATE
     Indication: ANXIETY

REACTIONS (6)
  - Malaise [Unknown]
  - Lethargy [Unknown]
  - Libido decreased [Unknown]
  - Dry mouth [Unknown]
  - Abdominal discomfort [Unknown]
  - Drug ineffective [Unknown]
